FAERS Safety Report 8941765 (Version 2)
Quarter: 2013Q1

REPORT INFORMATION
  Report Type: Spontaneous
  Country: US (occurrence: US)
  Receive Date: 20121203
  Receipt Date: 20130103
  Transmission Date: 20140127
  Serious: No
  Sender: FDA-Public Use
  Company Number: PHEH2012US023230

PATIENT
  Sex: Female

DRUGS (7)
  1. GILENYA [Suspect]
     Indication: MULTIPLE SCLEROSIS
     Dosage: 0.5 MG, EVERYDAY
     Route: 048
     Dates: start: 20110501
  2. LYRICA [Concomitant]
     Dosage: 25 MG, UNK
  3. LANSOPRAZOLE [Concomitant]
     Dosage: 15 MG, UNK
  4. AMANTADINE [Concomitant]
     Dosage: 100 MG, UNK
  5. MULTIVITAMINS [Concomitant]
  6. CALCIUM + VITAMIN D [Concomitant]
     Dosage: 600 UKN, UNK
  7. ASCORBIC ACID [Concomitant]
     Dosage: 100 MG, UNK

REACTIONS (1)
  - Fall [Recovered/Resolved]
